FAERS Safety Report 4472759-9 (Version None)
Quarter: 2004Q4

REPORT INFORMATION
  Report Type: 
  Country: None (occurrence: None)
  Receive Date: 20041012
  Receipt Date: 20041012
  Transmission Date: 20050328
  Serious: Yes (Hospitalization)
  Sender: FDA-Public Use
  Company Number: None

PATIENT
  Sex: Female
  Weight: 76.2043 kg

DRUGS (1)
  1. ARIMIDEX [Suspect]
     Indication: BREAST CANCER
     Dates: start: 20040401, end: 20041007

REACTIONS (4)
  - EYE SWELLING [None]
  - LEUKOPENIA [None]
  - PNEUMONIA [None]
  - RASH MACULAR [None]
